FAERS Safety Report 15203521 (Version 1)
Quarter: 2018Q3

REPORT INFORMATION
  Report Type: Spontaneous
  Country: US (occurrence: US)
  Receive Date: 20180627
  Receipt Date: 20180627
  Transmission Date: 20181010
  Serious: No
  Sender: FDA-Public Use
  Company Number: None

PATIENT
  Age: 10 Year
  Sex: Female
  Weight: 31.95 kg

DRUGS (3)
  1. METHYLPHENIDATE HCL 5MG TAB KVKT [Suspect]
     Active Substance: METHYLPHENIDATE HYDROCHLORIDE
     Indication: ATTENTION DEFICIT/HYPERACTIVITY DISORDER
     Dosage: ?          QUANTITY:1 DF DOSAGE FORM;?
     Route: 048
     Dates: start: 20180604, end: 20180627
  2. JUICE PLUS NATURAL GUMMIE VITAMINS [Concomitant]
  3. MELATONIN [Concomitant]
     Active Substance: MELATONIN

REACTIONS (6)
  - Patient uncooperative [None]
  - Agitation [None]
  - Product dispensing error [None]
  - Product substitution issue [None]
  - Abnormal behaviour [None]
  - Drug ineffective [None]

NARRATIVE: CASE EVENT DATE: 20180604
